FAERS Safety Report 4957803-4 (Version None)
Quarter: 2006Q1

REPORT INFORMATION
  Report Type: 
  Country: None (occurrence: None)
  Receive Date: 20060330
  Receipt Date: 20051021
  Transmission Date: 20060701
  Serious: Yes (Hospitalization)
  Sender: FDA-Public Use
  Company Number: JP-GILEAD-2005-0008843

PATIENT
  Sex: Male

DRUGS (6)
  1. HEPSERA [Suspect]
     Indication: HEPATITIS B
     Route: 048
     Dates: start: 20040527
  2. HEPSERA [Suspect]
     Indication: HEPATIC CIRRHOSIS
  3. ZEFFIX [Suspect]
     Indication: HEPATIC CIRRHOSIS
     Route: 048
     Dates: start: 20020403
  4. SPIRONOLACTONE [Concomitant]
     Indication: HEPATIC CIRRHOSIS
  5. FRUSEMIDE [Concomitant]
     Indication: HEPATIC CIRRHOSIS
  6. AMINOLEBAN EN [Concomitant]
     Indication: MEDICAL DIET

REACTIONS (1)
  - HEPATIC NEOPLASM MALIGNANT [None]
